FAERS Safety Report 9486976 (Version 1)
Quarter: 2013Q3

REPORT INFORMATION
  Report Type: Spontaneous
  Country: US (occurrence: US)
  Receive Date: 20130829
  Receipt Date: 20130829
  Transmission Date: 20140515
  Serious: Yes (Other)
  Sender: FDA-Public Use
  Company Number: US-GLAXOSMITHKLINE-A1039429A

PATIENT
  Age: 56 Year
  Sex: Male

DRUGS (2)
  1. FLOVENT [Suspect]
     Indication: MULTIPLE ALLERGIES
     Route: 065
     Dates: start: 20120727
  2. VENTOLIN [Suspect]
     Indication: PRODUCT USED FOR UNKNOWN INDICATION
     Route: 065
     Dates: start: 201208

REACTIONS (3)
  - Pharyngeal operation [Unknown]
  - Throat irritation [Unknown]
  - Hyperkeratosis [Unknown]
